FAERS Safety Report 22110523 (Version 1)
Quarter: 2023Q1

REPORT INFORMATION
  Report Type: Report from Study
  Country: CN (occurrence: CN)
  Receive Date: 20230317
  Receipt Date: 20230317
  Transmission Date: 20230418
  Serious: Yes (Other)
  Sender: FDA-Public Use
  Company Number: CN-JNJFOC-20230322145

PATIENT

DRUGS (1)
  1. SPORANOX [Suspect]
     Active Substance: ITRACONAZOLE
     Indication: Product used for unknown indication
     Route: 065

REACTIONS (70)
  - Hepatocellular injury [Unknown]
  - Hepatic failure [Unknown]
  - Hypokalaemia [Unknown]
  - Anaphylactoid reaction [Unknown]
  - Anaphylactic shock [Unknown]
  - Renal impairment [Unknown]
  - Dermatitis exfoliative [Unknown]
  - Cardiac failure [Unknown]
  - Delirium [Unknown]
  - Hallucination [Unknown]
  - Atrial fibrillation [Unknown]
  - Bradycardia [Unknown]
  - Altered state of consciousness [Unknown]
  - Seizure [Unknown]
  - Myelosuppression [Unknown]
  - Blindness transient [Unknown]
  - Hyperpyrexia [Unknown]
  - Intestinal obstruction [Unknown]
  - Epilepsy [Unknown]
  - Agranulocytosis [Unknown]
  - Generalised tonic-clonic seizure [Unknown]
  - Acute kidney injury [Unknown]
  - Hepatic function abnormal [Unknown]
  - Hypotension [Unknown]
  - Blood creatine phosphokinase increased [Unknown]
  - Hepatic enzyme increased [Unknown]
  - Blood bilirubin increased [Unknown]
  - Alanine aminotransferase increased [Unknown]
  - Chest pain [Unknown]
  - Tremor [Unknown]
  - Dizziness [Unknown]
  - Aspartate aminotransferase increased [Unknown]
  - Hyperhidrosis [Unknown]
  - Rash [Unknown]
  - Pruritus [Unknown]
  - Rash vesicular [Unknown]
  - Diarrhoea [Unknown]
  - Blood glucose increased [Unknown]
  - Platelet count decreased [Unknown]
  - Cough [Unknown]
  - Visual impairment [Unknown]
  - Dyspnoea [Unknown]
  - White blood cell count decreased [Unknown]
  - Hypertension [Unknown]
  - Tachycardia [Unknown]
  - Mental disorder [Unknown]
  - Mental disorder [Unknown]
  - Psychotic disorder [Unknown]
  - Sleep disorder [Unknown]
  - Agitation [Unknown]
  - Euphoric mood [Unknown]
  - Abnormal behaviour [Unknown]
  - Depression [Unknown]
  - Palpitations [Unknown]
  - Supraventricular tachycardia [Unknown]
  - Muscle contractions involuntary [Unknown]
  - Ataxia [Unknown]
  - Extrapyramidal disorder [Unknown]
  - Flushing [Unknown]
  - Coagulopathy [Unknown]
  - International normalised ratio increased [Unknown]
  - Miliaria [Unknown]
  - Haematuria [Unknown]
  - Anaemia [Unknown]
  - Hyponatraemia [Unknown]
  - Hyperlipidaemia [Unknown]
  - Tachypnoea [Unknown]
  - Epistaxis [Unknown]
  - Dry mouth [Unknown]
  - Mouth haemorrhage [Unknown]
